FAERS Safety Report 18462562 (Version 2)
Quarter: 2020Q4

REPORT INFORMATION
  Report Type: Spontaneous
  Country: US (occurrence: US)
  Receive Date: 20201104
  Receipt Date: 20201216
  Transmission Date: 20210114
  Serious: Yes (Other)
  Sender: FDA-Public Use
  Company Number: US-ENDO PHARMACEUTICALS INC-2020-007099

PATIENT
  Age: 56 Year
  Sex: Male
  Weight: 82.09 kg

DRUGS (2)
  1. XIAFLEX [Suspect]
     Active Substance: COLLAGENASE CLOSTRIDIUM HISTOLYTICUM
     Dosage: 0.53 MG, INJECTION 2 OF CYCLE 1
     Route: 026
     Dates: start: 20201027, end: 20201027
  2. XIAFLEX [Suspect]
     Active Substance: COLLAGENASE CLOSTRIDIUM HISTOLYTICUM
     Indication: PEYRONIE^S DISEASE
     Dosage: 0.53 MG, INJECTION 1 OF CYCLE 1
     Route: 026
     Dates: start: 20201024

REACTIONS (4)
  - Urethral haemorrhage [Unknown]
  - Swelling [Unknown]
  - Rash [Unknown]
  - Penile haemorrhage [Recovered/Resolved]

NARRATIVE: CASE EVENT DATE: 2020
